FAERS Safety Report 6556505-0 (Version None)
Quarter: 2010Q1

REPORT INFORMATION
  Report Type: 
  Country: None (occurrence: None)
  Receive Date: 20100128
  Receipt Date: 20100125
  Transmission Date: 20100710
  Serious: No
  Sender: FDA-Public Use
  Company Number: US-ROXANE LABORATORIES, INC.-2010-RO-00105RO

PATIENT
  Age: 56 Year
  Sex: Female

DRUGS (4)
  1. AZATHIOPRINE [Suspect]
     Indication: SYSTEMIC LUPUS ERYTHEMATOSUS
     Dosage: 50 MG
     Dates: start: 20091201, end: 20091201
  2. AZATHIOPRINE [Suspect]
     Dosage: 75 MG
     Dates: start: 20091201
  3. PREDNISONE [Suspect]
     Indication: SYSTEMIC LUPUS ERYTHEMATOSUS
     Dosage: 20 MG
     Dates: start: 20100112
  4. FUROSEMIDE [Suspect]

REACTIONS (3)
  - ANXIETY [None]
  - DYSURIA [None]
  - FLUID RETENTION [None]
